FAERS Safety Report 7237343-2 (Version None)
Quarter: 2011Q1

REPORT INFORMATION
  Report Type: 
  Country: None (occurrence: None)
  Receive Date: 20110121
  Receipt Date: 20101013
  Transmission Date: 20110831
  Serious: No
  Sender: FDA-Public Use
  Company Number: A0886409A

PATIENT
  Age: 40 Year
  Sex: Female

DRUGS (1)
  1. MEPRON [Suspect]
     Route: 048

REACTIONS (3)
  - HEADACHE [None]
  - CHEST DISCOMFORT [None]
  - PALPITATIONS [None]
